FAERS Safety Report 13036950 (Version 1)
Quarter: 2016Q4

REPORT INFORMATION
  Report Type: Spontaneous
  Country: US (occurrence: US)
  Receive Date: 20161216
  Receipt Date: 20161216
  Transmission Date: 20170207
  Serious: No
  Sender: FDA-Public Use
  Company Number: US-ELI_LILLY_AND_COMPANY-US201611006994

PATIENT
  Sex: Female

DRUGS (1)
  1. TALTZ [Suspect]
     Active Substance: IXEKIZUMAB
     Indication: PSORIASIS
     Dosage: UNK, 2/M
     Route: 065
     Dates: start: 20161026

REACTIONS (6)
  - Injection site pruritus [Recovering/Resolving]
  - Injection site urticaria [Recovering/Resolving]
  - Injection site reaction [Recovering/Resolving]
  - Injection site swelling [Recovering/Resolving]
  - Injection site warmth [Recovering/Resolving]
  - Injection site discomfort [Recovering/Resolving]

NARRATIVE: CASE EVENT DATE: 20161026
